FAERS Safety Report 7507754 (Version 5)
Quarter: 2012Q4

REPORT INFORMATION
  Report Type: 
  Country: US (occurrence: US)
  Receive Date: 20100729
  Receipt Date: 20121030
  Transmission Date: 20130627
  Serious: No
  Sender: FDA-Public Use
  Company Number: US-B.I. PHARMACEUTICALS,INC./RIDGEFIELD-2010-BP-07888BP

PATIENT
  Age: 63 Year
  Sex: Female

DRUGS (2)
  1. SPIRIVA HANDIHALER [Suspect]
     Indication: CHRONIC OBSTRUCTIVE PULMONARY DISEASE
     Dosage: 18 mcg
     Route: 055
     Dates: start: 2004, end: 20100705
  2. SPIRIVA HANDIHALER [Suspect]

REACTIONS (8)
  - Headache [Not Recovered/Not Resolved]
  - Chest discomfort [Not Recovered/Not Resolved]
  - Anxiety [Unknown]
  - Dyspnoea [Unknown]
  - Aphonia [Unknown]
  - Poor quality sleep [Not Recovered/Not Resolved]
  - Dry mouth [Not Recovered/Not Resolved]
  - Product quality issue [Unknown]
